FAERS Safety Report 17445223 (Version 7)
Quarter: 2024Q3

REPORT INFORMATION
  Report Type: Spontaneous
  Country: US (occurrence: US)
  Receive Date: 20200221
  Receipt Date: 20240725
  Transmission Date: 20241017
  Serious: Yes (Other)
  Sender: PFIZER
  Company Number: US-PFIZER INC-2020077979

PATIENT
  Age: 69 Year
  Sex: Female

DRUGS (1)
  1. XELJANZ XR [Suspect]
     Active Substance: TOFACITINIB CITRATE
     Dosage: 11 MG

REACTIONS (6)
  - Colitis [Unknown]
  - Rheumatoid arthritis [Unknown]
  - Knee arthroplasty [Unknown]
  - Nasopharyngitis [Unknown]
  - Hypoacusis [Unknown]
  - Confusional state [Unknown]
